FAERS Safety Report 7731286-3 (Version None)
Quarter: 2011Q3

REPORT INFORMATION
  Report Type: 
  Country: None (occurrence: None)
  Receive Date: 20110906
  Receipt Date: 20110828
  Transmission Date: 20111222
  Serious: Yes (Other)
  Sender: FDA-Public Use
  Company Number: US-BAYER-2011-079077

PATIENT
  Age: 44 Year
  Sex: Female
  Weight: 86.168 kg

DRUGS (8)
  1. CIPROFLOXACIN [Suspect]
     Indication: LOCALISED INFECTION
     Dosage: 2 DF, BID
     Dates: start: 20110601, end: 20110601
  2. ANALGESICS [Concomitant]
  3. BACTRIM DS [Suspect]
     Indication: LOCALISED INFECTION
     Dosage: UNK
     Dates: start: 20110101, end: 20110101
  4. LEXAPRO [Concomitant]
  5. NASONEX [Concomitant]
     Indication: MULTIPLE ALLERGIES
     Dosage: UNK
  6. CIPROFLOXACIN [Suspect]
     Indication: LOCALISED INFECTION
     Dosage: 2 DF, BID
     Dates: start: 20110801, end: 20110801
  7. KLONOPIN [Concomitant]
  8. ARTESUNATE [Concomitant]

REACTIONS (2)
  - INFECTED SKIN ULCER [None]
  - TENDONITIS [None]
